FAERS Safety Report 14510245 (Version 1)
Quarter: 2018Q1

REPORT INFORMATION
  Report Type: Spontaneous
  Country: US (occurrence: US)
  Receive Date: 20180208
  Receipt Date: 20180208
  Transmission Date: 20180509
  Serious: Yes (Disabling)
  Sender: FDA-Public Use
  Company Number: None

PATIENT
  Sex: Female
  Weight: 50.4 kg

DRUGS (2)
  1. CARBIDOPA-LEVODOPA [Suspect]
     Active Substance: CARBIDOPA\LEVODOPA
     Indication: PARKINSON^S DISEASE
     Dosage: ?          QUANTITY:300 TABLET(S);?
     Route: 048
     Dates: start: 20180117, end: 20180208
  2. METAPROLOL [Concomitant]
     Active Substance: METOPROLOL

REACTIONS (5)
  - Dysphagia [None]
  - Parkinson^s disease [None]
  - Product substitution issue [None]
  - Oculogyric crisis [None]
  - Movement disorder [None]

NARRATIVE: CASE EVENT DATE: 20180129
